FAERS Safety Report 5034093-8 (Version None)
Quarter: 2006Q2

REPORT INFORMATION
  Report Type: 
  Country: None (occurrence: None)
  Receive Date: 20060621
  Receipt Date: 20060609
  Transmission Date: 20061013
  Serious: Yes (Death, Hospitalization, Other)
  Sender: FDA-Public Use
  Company Number: 163-20785-06050113

PATIENT
  Age: 67 Year
  Sex: Male

DRUGS (6)
  1. THALOMID [Suspect]
     Indication: MULTIPLE MYELOMA
     Dosage: 100MG THREE TIMES A DAY, ORAL
     Route: 048
     Dates: start: 20060328, end: 20060403
  2. DECADRON [Concomitant]
  3. PEPCID [Concomitant]
  4. AREDIA [Concomitant]
  5. LOTENSIN [Concomitant]
  6. VICODIN [Concomitant]

REACTIONS (5)
  - AORTIC STENOSIS [None]
  - MYOCARDIAL INFARCTION [None]
  - PULMONARY EMBOLISM [None]
  - RENAL FAILURE [None]
  - SYNCOPE [None]
